FAERS Safety Report 4539313-1 (Version None)
Quarter: 2004Q4

REPORT INFORMATION
  Report Type: 
  Country: None (occurrence: None)
  Receive Date: 20041227
  Receipt Date: 20041227
  Transmission Date: 20050328
  Serious: No
  Sender: FDA-Public Use
  Company Number: None

PATIENT
  Age: 47 Year
  Sex: Female
  Weight: 89.3586 kg

DRUGS (1)
  1. ZOLOFT [Suspect]
     Dosage: 1X DAILY

REACTIONS (11)
  - ABNORMAL BEHAVIOUR [None]
  - BRUXISM [None]
  - DEPRESSION [None]
  - FEELING ABNORMAL [None]
  - HEADACHE [None]
  - IMPAIRED WORK ABILITY [None]
  - SCREAMING [None]
  - SWOLLEN TONGUE [None]
  - THINKING ABNORMAL [None]
  - TOOTHACHE [None]
  - VISION BLURRED [None]
